FAERS Safety Report 23776083 (Version 1)
Quarter: 2024Q2

REPORT INFORMATION
  Report Type: Spontaneous
  Country: US (occurrence: US)
  Receive Date: 20240424
  Receipt Date: 20240424
  Transmission Date: 20240716
  Serious: No
  Sender: FDA-Public Use
  Company Number: US-ALVOGEN-2023092350

PATIENT
  Sex: Female

DRUGS (2)
  1. ESTRADIOL [Suspect]
     Active Substance: ESTRADIOL
     Indication: Vulvovaginal dryness
     Dosage: BEEN OVER A YEAR SHE HAS BEEN USING THE CREAM, USED TO WITHDRAW HALF AMOUNT OF APPLICATOR DAILY
  2. ESTRADIOL [Suspect]
     Active Substance: ESTRADIOL
     Indication: Vulvovaginal dryness
     Dosage: AT HOME, SHE USED TO APPLY THREE TIMES A WEEK.

REACTIONS (4)
  - Vulvovaginal pain [Recovering/Resolving]
  - Urinary tract infection [Recovering/Resolving]
  - Vulvovaginal burning sensation [Recovering/Resolving]
  - Wrong technique in device usage process [Unknown]
